FAERS Safety Report 5233287-6 (Version None)
Quarter: 2007Q1

REPORT INFORMATION
  Report Type: 
  Country: None (occurrence: None)
  Receive Date: 20070206
  Receipt Date: 20070125
  Transmission Date: 20070707
  Serious: Yes (Hospitalization)
  Sender: FDA-Public Use
  Company Number: 228931

PATIENT
  Age: 68 Year
  Sex: Male
  Weight: 81.5 kg

DRUGS (13)
  1. AVASTIN [Suspect]
     Indication: BLADDER CANCER
     Dosage: 1260 MG DAYS 1+22, INTRAVENOUS
     Route: 042
     Dates: start: 20060712
  2. CISPLATIN [Suspect]
     Indication: BLADDER CANCER
     Dosage: 102 MG, DAYS 1+22, INTRAVENOUS
     Route: 042
     Dates: start: 20060712
  3. GEMCITABINE [Suspect]
     Indication: BLADDER CANCER
     Dosage: 1656 MG, DAY 1+8/Q3W, INTRAVENOUS
     Route: 042
     Dates: start: 20060712
  4. AVINZA [Concomitant]
  5. ZOCOR [Concomitant]
  6. EFFEXOR XR [Concomitant]
  7. AVASTIN [Suspect]
  8. AVASTIN [Suspect]
  9. PRILOSEC [Concomitant]
  10. LYRICA [Concomitant]
  11. TYLENOL (CAPLET) [Concomitant]
  12. MOTRIN [Concomitant]
  13. NEULASTA [Concomitant]

REACTIONS (4)
  - FEBRILE NEUTROPENIA [None]
  - HAEMOGLOBIN DECREASED [None]
  - PLATELET COUNT DECREASED [None]
  - URINARY TRACT INFECTION [None]
